FAERS Safety Report 13698589 (Version 3)
Quarter: 2017Q3

REPORT INFORMATION
  Report Type: Spontaneous
  Country: CN (occurrence: CN)
  Receive Date: 20170628
  Receipt Date: 20170714
  Transmission Date: 20171127
  Serious: Yes (Other)
  Sender: FDA-Public Use
  Company Number: CN-GILEAD-2017-0279891

PATIENT
  Age: 55 Year
  Sex: Male
  Weight: 72.5 kg

DRUGS (8)
  1. VIREAD [Suspect]
     Active Substance: TENOFOVIR DISOPROXIL FUMARATE
     Indication: HEPATITIS B
     Dosage: 300 MG, QD
     Route: 048
     Dates: start: 201606
  2. ENTECAVIR. [Concomitant]
     Active Substance: ENTECAVIR
     Dosage: 1 DF, QOD
     Route: 048
     Dates: start: 20170621
  3. SEBIVO [Concomitant]
     Active Substance: TELBIVUDINE
     Indication: HEPATITIS B
     Dosage: 1 DF, QD
  4. HEPTODIN [Suspect]
     Active Substance: LAMIVUDINE
     Indication: HEPATITIS B
     Dosage: 1 DF, QD
     Route: 048
     Dates: start: 1999
  5. ENTECAVIR. [Concomitant]
     Active Substance: ENTECAVIR
     Indication: HEPATITIS B
     Dosage: 2 DF, QD
  6. HEPSERA [Suspect]
     Active Substance: ADEFOVIR DIPIVOXIL
     Indication: HEPATITIS B
     Dosage: 1 DF, QD
     Route: 048
  7. VIREAD [Suspect]
     Active Substance: TENOFOVIR DISOPROXIL FUMARATE
     Dosage: 1 DF, QOD
     Route: 065
  8. TENOFOVIR DISOPROXIL FUMARATE. [Suspect]
     Active Substance: TENOFOVIR DISOPROXIL FUMARATE
     Indication: HEPATITIS B
     Dosage: 1 DF, QD
     Route: 065
     Dates: end: 20170620

REACTIONS (6)
  - Renal injury [Recovered/Resolved]
  - Pathogen resistance [Unknown]
  - Blood urea increased [Not Recovered/Not Resolved]
  - Drug ineffective [Unknown]
  - Blood creatinine increased [Not Recovered/Not Resolved]
  - Drug prescribing error [Unknown]
